FAERS Safety Report 8474456-1 (Version None)
Quarter: 2012Q2

REPORT INFORMATION
  Report Type: 
  Country: None (occurrence: None)
  Receive Date: 20120628
  Receipt Date: 20120625
  Transmission Date: 20120825
  Serious: Yes (Other)
  Sender: FDA-Public Use
  Company Number: PHEH2012US010155

PATIENT
  Sex: Female

DRUGS (4)
  1. CYMBALTA [Concomitant]
     Dosage: 1 DF (60 MG), QD
  2. LASIX [Concomitant]
     Dosage: 1 DF (40 MG), QD
  3. DIOVAN HCT [Suspect]
     Dosage: 1 DF (320/UNKNOWN MG), QD
  4. LIPITOR [Concomitant]
     Dosage: 1 DF (20 MG), QD

REACTIONS (2)
  - JOINT ANKYLOSIS [None]
  - FALL [None]
